FAERS Safety Report 25032551 (Version 1)
Quarter: 2025Q1

REPORT INFORMATION
  Report Type: Spontaneous
  Country: GB (occurrence: GB)
  Receive Date: 20250303
  Receipt Date: 20250303
  Transmission Date: 20250409
  Serious: Yes (Other)
  Sender: TEVA
  Company Number: GB-MHRA-TPP5433362C10395610YC1740484907189

PATIENT
  Age: 42 Year
  Sex: Male
  Weight: 94 kg

DRUGS (5)
  1. RAMIPRIL [Suspect]
     Active Substance: RAMIPRIL
     Indication: Ill-defined disorder
     Route: 065
     Dates: start: 20250225
  2. CANDESARTAN [Concomitant]
     Active Substance: CANDESARTAN
     Indication: Ill-defined disorder
     Dosage: TAKE ONE TABLET ONCE A DAY
     Route: 065
     Dates: start: 20250225
  3. METFORMIN [Concomitant]
     Active Substance: METFORMIN HYDROCHLORIDE
     Indication: Ill-defined disorder
     Dosage: TAKE ONE  TWICE DAILY
     Route: 065
     Dates: start: 20241211
  4. ATORVASTATIN [Concomitant]
     Active Substance: ATORVASTATIN
     Indication: Ill-defined disorder
     Dosage: TAKE ONE TABLET ONCE A DAY
     Route: 065
     Dates: start: 20241211
  5. RAMIPRIL [Concomitant]
     Active Substance: RAMIPRIL
     Indication: Ill-defined disorder
     Dosage: TAKE ONE CAPSULE ONCE A DAY
     Route: 065
     Dates: start: 20241211, end: 20250225

REACTIONS (1)
  - Cough [Recovered/Resolved]

NARRATIVE: CASE EVENT DATE: 20250225
